FAERS Safety Report 8162347-5 (Version None)
Quarter: 2012Q1

REPORT INFORMATION
  Report Type: 
  Country: None (occurrence: None)
  Receive Date: 20120224
  Receipt Date: 20120216
  Transmission Date: 20120608
  Serious: Yes (Other)
  Sender: FDA-Public Use
  Company Number: US-BAYER-200937686NA

PATIENT
  Age: 54 Year
  Sex: Female
  Weight: 122 kg

DRUGS (44)
  1. TRASYLOL [Suspect]
     Dosage: 50 ML (LOADING)
     Route: 042
     Dates: start: 20050101, end: 20050101
  2. AMARYL [Concomitant]
     Dosage: 4 MG, QD
     Route: 048
  3. ALBUTEROL [Concomitant]
     Dosage: Q3-4 HRS INHALATION
     Route: 055
  4. VANCOMYCIN [Concomitant]
     Dosage: 2.5 G, UNK
     Route: 042
     Dates: start: 20050101
  5. VERSED [Concomitant]
     Dosage: 5 MG, UNK
     Route: 042
     Dates: start: 20050101, end: 20050101
  6. ZEMURON [Concomitant]
     Dosage: UNK
     Route: 042
     Dates: start: 20050101, end: 20050101
  7. PEPCID [Concomitant]
     Dosage: 20 MG, UNK
     Route: 042
     Dates: start: 20050101, end: 20050101
  8. LIDOCAINE [Concomitant]
     Dosage: 100 MG, UNK
     Route: 042
     Dates: start: 20050101, end: 20050101
  9. ZANTAC [Concomitant]
     Dosage: 300 MG, QD
     Route: 048
  10. BENADRYL [Concomitant]
     Dosage: 50 MG, UNK
     Route: 042
     Dates: start: 20050101, end: 20050101
  11. NITROGLYCERIN [Concomitant]
     Dosage: UNK
     Route: 042
     Dates: start: 20050101, end: 20050102
  12. VECURONIUM BROMIDE [Concomitant]
     Dosage: 5 MG, UNK
     Route: 042
     Dates: start: 20050101, end: 20050101
  13. INSULIN [Concomitant]
     Dosage: 5 U, UNK
     Route: 042
     Dates: start: 20050101, end: 20050103
  14. TRASYLOL [Suspect]
     Indication: CORONARY ARTERY BYPASS
     Dosage: 200ML FOLLOWED BY 50ML/HR
     Route: 042
     Dates: start: 20050101, end: 20050101
  15. ATROVENT [Concomitant]
     Dosage: Q3-4HRS INHALATION
     Route: 055
  16. DESMOPRESSIN ACETATE [Concomitant]
     Dosage: 4 MCG
     Route: 042
     Dates: start: 20050101, end: 20050101
  17. AMIODARONE HCL [Concomitant]
     Dosage: 150 MG, UNK
     Route: 042
     Dates: start: 20050101, end: 20050101
  18. NEURONTIN [Concomitant]
     Dosage: 300 MG, TID
     Route: 048
  19. MANNITOL [Concomitant]
     Dosage: 12.5 MG, UNK
     Route: 042
     Dates: start: 20050101, end: 20050101
  20. TRASYLOL [Suspect]
     Dosage: 50 ML/HR INFUSION
     Route: 042
     Dates: start: 20050101, end: 20050101
  21. IMITREX [Concomitant]
     Dosage: 500 MG, QD PRN
  22. CAPOTEN [Concomitant]
     Dosage: 25 MG, BID
     Route: 048
  23. LABETALOL HCL [Concomitant]
     Dosage: UNK
     Route: 042
     Dates: start: 20050101, end: 20050101
  24. PROCARDIA XL [Concomitant]
     Dosage: 60 MG, QD
     Route: 048
  25. DIOVAN HCT [Concomitant]
     Dosage: 80 MG, QD
  26. NITRO-BID [Concomitant]
     Dosage: 1/2 INCH Q8HRS
     Route: 061
  27. HEPARIN [Concomitant]
     Dosage: 40000 U, UNK
     Route: 042
     Dates: start: 20050101, end: 20050101
  28. CALCIUM CHLORIDE [Concomitant]
     Dosage: 1 G, UNK
     Route: 042
     Dates: start: 20050101, end: 20050101
  29. PLATELETS [Concomitant]
     Dosage: 1 U, UNK
     Route: 042
     Dates: start: 20050101, end: 20050101
  30. POTASSIUM CHLORIDE [Concomitant]
     Dosage: 20 MCG BID
     Route: 048
  31. PROZAC [Concomitant]
     Dosage: 20 MG, QD
     Route: 048
  32. DEPAKOTE [Concomitant]
     Dosage: 250 MG, BID
     Route: 048
  33. TOPROL-XL [Concomitant]
     Dosage: 200 MG, QD
     Route: 048
  34. QUININE SULFATE [Concomitant]
     Dosage: 260 MG, BID
     Route: 048
  35. PERCOCET [Concomitant]
     Dosage: 160/12.5 MG DAILY
     Route: 048
  36. FLONASE [Concomitant]
     Dosage: 2 SPRAYS DAILY PRN INTRANASAL
     Route: 055
  37. FENTANYL [Concomitant]
     Dosage: 100 MG, UNK
     Route: 042
     Dates: start: 20050101, end: 20050101
  38. DOPAMINE HCL [Concomitant]
     Dosage: UNK
     Route: 042
     Dates: start: 20050101, end: 20050101
  39. PRECEDEX [Concomitant]
     Dosage: UNK
     Route: 042
     Dates: start: 20050101, end: 20050102
  40. PROTAMINE SULFATE [Concomitant]
     Dosage: 450 MG, UNK
     Route: 042
     Dates: start: 20050101, end: 20050101
  41. LEVAQUIN [Concomitant]
     Indication: URINARY TRACT INFECTION
     Dosage: 500 MG, UNK
     Dates: start: 20050103
  42. CELEBREX [Concomitant]
     Dosage: 200 MG, BID
     Route: 048
  43. LASIX [Concomitant]
     Dosage: 80 MG, QD
     Route: 048
  44. MAGNESIUM SULFATE [Concomitant]
     Dosage: 1 G, UNK
     Route: 042
     Dates: start: 20050101, end: 20050101

REACTIONS (5)
  - PSYCHOLOGICAL TRAUMA [None]
  - UNEVALUABLE EVENT [None]
  - INJURY [None]
  - PAIN [None]
  - RENAL FAILURE [None]
